FAERS Safety Report 9173479 (Version 1)
Quarter: 2013Q1

REPORT INFORMATION
  Report Type: Spontaneous
  Country: NO (occurrence: None)
  Receive Date: 20130315
  Receipt Date: 20130315
  Transmission Date: 20140127
  Serious: Yes (Life-Threatening, Hospitalization)
  Sender: FDA-Public Use
  Company Number: ABR_00864_2013

PATIENT
  Sex: Male

DRUGS (5)
  1. ERYTHROMYCIN (ERYTHROMYCIN) [Suspect]
  2. AMINOPHYLLIN [Suspect]
     Route: 042
     Dates: start: 20110409, end: 20110409
  3. AMPICILLIN (UNKNOWN) [Concomitant]
  4. ADRENALIN /00003901/ (UNKNOWN) [Concomitant]
  5. VENTOLINE /00139501/ (UNKNOWN) [Concomitant]

REACTIONS (1)
  - Grand mal convulsion [None]
